FAERS Safety Report 20394926 (Version 1)
Quarter: 2022Q1

REPORT INFORMATION
  Report Type: Spontaneous
  Country: AU (occurrence: AU)
  Receive Date: 20220130
  Receipt Date: 20220130
  Transmission Date: 20220424
  Serious: Yes (Death, Other)
  Sender: FDA-Public Use
  Company Number: AU-PHARMAMAR-2020PM000196

PATIENT
  Sex: Male

DRUGS (1)
  1. ZEPZELCA [Suspect]
     Active Substance: LURBINECTEDIN
     Indication: Small cell lung cancer extensive stage
     Dosage: 3.2 MILLIGRAM/SQ. METER REPEATED EVERY 21 DAYS
     Route: 042
     Dates: start: 20200520

REACTIONS (1)
  - Disease progression [Fatal]
